FAERS Safety Report 4712059-2 (Version None)
Quarter: 2005Q2

REPORT INFORMATION
  Report Type: 
  Country: None (occurrence: None)
  Receive Date: 20050629
  Receipt Date: 20050404
  Transmission Date: 20051028
  Serious: No
  Sender: FDA-Public Use
  Company Number: 05P-163-0296124-00

PATIENT
  Age: 67 Year
  Sex: Female
  Weight: 68.0396 kg

DRUGS (8)
  1. HUMIRA [Suspect]
     Indication: RHEUMATOID ARTHRITIS
     Dosage: 40 MG, 1 IN 2 WK, SUBCUTANEOUS
     Route: 058
     Dates: start: 20050218, end: 20050318
  2. HYDROXYCHLOROQUINE PHOSPHATE [Concomitant]
  3. FOLIC ACID [Concomitant]
  4. ESTROGENS CONJUGATED [Concomitant]
  5. FISH OIL [Concomitant]
  6. CALCIUM GLUCONATE [Concomitant]
  7. MULTI-VITAMINS [Concomitant]
  8. ASCORBIC ACID [Concomitant]

REACTIONS (2)
  - INJECTION SITE ERYTHEMA [None]
  - INJECTION SITE PRURITUS [None]
